FAERS Safety Report 25535810 (Version 3)
Quarter: 2025Q4

REPORT INFORMATION
  Report Type: Spontaneous
  Country: US (occurrence: US)
  Receive Date: 20250709
  Receipt Date: 20251027
  Transmission Date: 20260117
  Serious: No
  Sender: NOVARTIS
  Company Number: US-002147023-NVSC2025US105237

PATIENT

DRUGS (3)
  1. SANDOSTATIN LAR DEPOT [Suspect]
     Active Substance: OCTREOTIDE ACETATE
     Indication: Product used for unknown indication
     Dosage: 30 MG
     Route: 065
  2. SANDOSTATIN LAR DEPOT [Suspect]
     Active Substance: OCTREOTIDE ACETATE
  3. SANDOSTATIN LAR DEPOT [Suspect]
     Active Substance: OCTREOTIDE ACETATE

REACTIONS (3)
  - Device malfunction [Unknown]
  - Syringe issue [Unknown]
  - Incorrect dose administered by device [Unknown]
